FAERS Safety Report 10362330 (Version 1)
Quarter: 2014Q3

REPORT INFORMATION
  Report Type: Spontaneous
  Country: US (occurrence: None)
  Receive Date: 20140804
  Receipt Date: 20140804
  Transmission Date: 20150326
  Serious: No
  Sender: FDA-Public Use
  Company Number: None

PATIENT
  Age: 70 Year
  Sex: Female

DRUGS (1)
  1. HUMIRA [Suspect]
     Active Substance: ADALIMUMAB
     Indication: RHEUMATOID ARTHRITIS
     Route: 058
     Dates: start: 20140516, end: 20140709

REACTIONS (6)
  - Pruritus [None]
  - Condition aggravated [None]
  - Cough [None]
  - Rash [None]
  - Atrial fibrillation [None]
  - Injection site bruising [None]

NARRATIVE: CASE EVENT DATE: 20140609
